FAERS Safety Report 8859805 (Version 1)
Quarter: 2012Q4

REPORT INFORMATION
  Report Type: 
  Country: US (occurrence: US)
  Receive Date: 20121025
  Receipt Date: 20121025
  Transmission Date: 20130627
  Serious: No
  Sender: FDA-Public Use
  Company Number: US-BAYER-2012-105199

PATIENT
  Sex: Male

DRUGS (3)
  1. BILTRICIDE [Suspect]
     Indication: UNEVALUABLE EVENT
  2. ANTIBIOTICS [Concomitant]
     Indication: CHRONIC PAIN
  3. NARCOTICS [Concomitant]
     Indication: CHRONIC PAIN

REACTIONS (1)
  - Therapeutic response unexpected [None]
